FAERS Safety Report 10125789 (Version 1)
Quarter: 2014Q2

REPORT INFORMATION
  Report Type: Spontaneous
  Country: KR (occurrence: KR)
  Receive Date: 20140425
  Receipt Date: 20140425
  Transmission Date: 20141212
  Serious: Yes (Other)
  Sender: FDA-Public Use
  Company Number: KR-WATSON-2014-07929

PATIENT
  Age: 49 Year
  Sex: Male

DRUGS (8)
  1. IRINOTECAN (UNKNOWN) [Suspect]
     Indication: COLON CANCER METASTATIC
     Dosage: 180 MG/M2, CYCLICAL; INFUSED OVER 120 MINUTES
     Route: 042
     Dates: start: 201112
  2. FLUOROURACIL (UNKNOWN) [Suspect]
     Indication: COLON CANCER METASTATIC
     Dosage: UNK
     Route: 065
     Dates: start: 201112
  3. METOCLOPRAMIDE (UNKNOWN) [Suspect]
     Indication: PRODUCT USED FOR UNKNOWN INDICATION
     Dosage: UNK
     Route: 065
  4. PALONOSETRON [Suspect]
     Indication: PRODUCT USED FOR UNKNOWN INDICATION
     Dosage: UNK
     Route: 065
  5. LEUCOVORIN                         /00566701/ [Concomitant]
     Indication: COLON CANCER METASTATIC
     Dosage: UNK
     Route: 065
     Dates: start: 201112
  6. ATROPINE [Concomitant]
     Indication: PRODUCT USED FOR UNKNOWN INDICATION
     Dosage: UNK
     Route: 065
  7. GRANISETRON [Concomitant]
     Indication: PRODUCT USED FOR UNKNOWN INDICATION
     Dosage: UNK
     Route: 065
  8. RAMOSETRON [Concomitant]
     Indication: PRODUCT USED FOR UNKNOWN INDICATION
     Dosage: UNK
     Route: 065

REACTIONS (5)
  - Dysarthria [Recovered/Resolved]
  - Cerebrovascular accident [Unknown]
  - Tongue paralysis [Recovered/Resolved]
  - Decreased appetite [Unknown]
  - Diarrhoea [Unknown]
